FAERS Safety Report 25660830 (Version 1)
Quarter: 2025Q3

REPORT INFORMATION
  Report Type: Spontaneous
  Country: JP (occurrence: JP)
  Receive Date: 20250808
  Receipt Date: 20250808
  Transmission Date: 20251020
  Serious: Yes (Other)
  Sender: ABBVIE
  Company Number: JP-ABBVIE-6405381

PATIENT
  Age: 100 Year
  Sex: Male

DRUGS (3)
  1. SILODOSIN [Suspect]
     Active Substance: SILODOSIN
     Indication: Product used for unknown indication
     Route: 048
  2. FINASTERIDE [Concomitant]
     Active Substance: FINASTERIDE
     Indication: Product used for unknown indication
  3. VIBEGRON [Suspect]
     Active Substance: VIBEGRON
     Indication: Product used for unknown indication
     Route: 065

REACTIONS (2)
  - Prostate cancer [Unknown]
  - Urinary retention [Recovered/Resolved]
